FAERS Safety Report 6479827-0 (Version None)
Quarter: 2009Q4

REPORT INFORMATION
  Report Type: 
  Country: None (occurrence: None)
  Receive Date: 20091208
  Receipt Date: 20091130
  Transmission Date: 20100525
  Serious: Yes (Hospitalization, Congenital Anomaly)
  Sender: FDA-Public Use
  Company Number: DE-WYE-G05027509

PATIENT
  Sex: Male
  Weight: 1.84 kg

DRUGS (2)
  1. RAPAMUNE [Suspect]
     Indication: LYMPHANGIOLEIOMYOMATOSIS
     Route: 064
     Dates: start: 20080401, end: 20090228
  2. RAPAMUNE [Suspect]
     Route: 064
     Dates: start: 20090716

REACTIONS (13)
  - ANAEMIA NEONATAL [None]
  - BRADYCARDIA NEONATAL [None]
  - CARDIAC MURMUR [None]
  - FEEDING DISORDER NEONATAL [None]
  - HYPOTONIA NEONATAL [None]
  - INFANTILE APNOEIC ATTACK [None]
  - NEONATAL HYPOTENSION [None]
  - NEONATAL TACHYPNOEA [None]
  - OXYGEN SATURATION DECREASED [None]
  - PREMATURE BABY [None]
  - PULMONARY ARTERY STENOSIS CONGENITAL [None]
  - RHINITIS [None]
  - STAPHYLOCOCCAL INFECTION [None]
